FAERS Safety Report 23742336 (Version 2)
Quarter: 2024Q2

REPORT INFORMATION
  Report Type: Spontaneous
  Country: US (occurrence: US)
  Receive Date: 20240415
  Receipt Date: 20240520
  Transmission Date: 20240716
  Serious: No
  Sender: FDA-Public Use
  Company Number: US-PFIZER INC-PV202400047995

PATIENT
  Age: 11 Year
  Sex: Female
  Weight: 38.7 kg

DRUGS (2)
  1. GENOTROPIN [Suspect]
     Active Substance: SOMATROPIN
     Indication: Hypopituitarism
     Dosage: 1.2 MG DAILY = 0.22 MG/KG/WEEK
     Route: 051
     Dates: start: 202311
  2. GENOTROPIN [Suspect]
     Active Substance: SOMATROPIN
     Indication: Growth hormone deficiency
     Dosage: 1.8 MG/DAY 7 DAYS/WEEK (DOSE IN INCREMENTS OF 0.2 MG)

REACTIONS (3)
  - Arthralgia [Not Recovered/Not Resolved]
  - Injection site bruising [Unknown]
  - Product dose omission issue [Unknown]
